FAERS Safety Report 18259130 (Version 1)
Quarter: 2020Q3

REPORT INFORMATION
  Report Type: Spontaneous
  Country: US (occurrence: US)
  Receive Date: 20200911
  Receipt Date: 20200911
  Transmission Date: 20201103
  Serious: No
  Sender: FDA-Public Use
  Company Number: US-PFIZER INC-2020351350

PATIENT
  Age: 63 Year
  Sex: Female

DRUGS (2)
  1. GABAPENTIN. [Suspect]
     Active Substance: GABAPENTIN
     Dosage: 1800 MG, (THREE 600 MG TABLETS)
  2. LYRICA [Suspect]
     Active Substance: PREGABALIN
     Dosage: 225 DOSAGE

REACTIONS (1)
  - Nerve injury [Unknown]
